FAERS Safety Report 12208354 (Version 1)
Quarter: 2016Q1

REPORT INFORMATION
  Report Type: Spontaneous
  Country: CN (occurrence: CN)
  Receive Date: 20160324
  Receipt Date: 20160324
  Transmission Date: 20160526
  Serious: Yes (Other)
  Sender: FDA-Public Use
  Company Number: CN-WATSON-2016-06071

PATIENT
  Age: 94 Year
  Sex: Male

DRUGS (3)
  1. LEVOFLOXACIN. [Concomitant]
     Active Substance: LEVOFLOXACIN
     Indication: PULMONARY TUBERCULOSIS
     Dosage: 0.2 UNK, BID
     Route: 065
     Dates: start: 200410, end: 20051009
  2. ISONIAZID. [Suspect]
     Active Substance: ISONIAZID
     Indication: PULMONARY TUBERCULOSIS
     Dosage: 0.2,UNK, DAILY
     Route: 065
     Dates: start: 200410, end: 20051009
  3. ETHAMBUTOL [Concomitant]
     Active Substance: ETHAMBUTOL HYDROCHLORIDE
     Indication: PULMONARY TUBERCULOSIS
     Dosage: 0.5 UNK, DAILY
     Route: 065
     Dates: start: 200410, end: 20051009

REACTIONS (1)
  - Aplasia pure red cell [Recovered/Resolved]
